FAERS Safety Report 7307580-7 (Version None)
Quarter: 2011Q1

REPORT INFORMATION
  Report Type: 
  Country: None (occurrence: None)
  Receive Date: 20110223
  Receipt Date: 20110223
  Transmission Date: 20110831
  Serious: Yes (Other)
  Sender: FDA-Public Use
  Company Number: None

PATIENT
  Age: 44 Year
  Sex: Female
  Weight: 54.8852 kg

DRUGS (1)
  1. ALCOHOL SWABS 70% WALGREENS [Suspect]

REACTIONS (5)
  - WHITE BLOOD CELL COUNT INCREASED [None]
  - MUSCLE SPASMS [None]
  - PHARYNGEAL OEDEMA [None]
  - PYREXIA [None]
  - PAIN [None]
